FAERS Safety Report 6622288-9 (Version None)
Quarter: 2010Q1

REPORT INFORMATION
  Report Type: 
  Country: None (occurrence: None)
  Receive Date: 20100310
  Receipt Date: 20100223
  Transmission Date: 20100710
  Serious: Yes (Other)
  Sender: FDA-Public Use
  Company Number: US-ELI_LILLY_AND_COMPANY-US201002006674

PATIENT
  Sex: Female

DRUGS (6)
  1. FORTEO [Suspect]
     Indication: OSTEOPOROSIS
     Dosage: 20 UG, DAILY (1/D)
     Dates: start: 20090801, end: 20091101
  2. FORTEO [Suspect]
     Dosage: 20 UG, DAILY (1/D)
     Dates: start: 20091201
  3. COZAAR [Concomitant]
  4. CYMBALTA [Concomitant]
  5. SINGULAIR [Concomitant]
  6. ANALGESICS [Concomitant]

REACTIONS (5)
  - BONE PAIN [None]
  - HIP FRACTURE [None]
  - INSOMNIA [None]
  - MUSCLE SPASMS [None]
  - VERTEBROPLASTY [None]
